FAERS Safety Report 20054186 (Version 1)
Quarter: 2021Q4

REPORT INFORMATION
  Report Type: Spontaneous
  Country: US (occurrence: US)
  Receive Date: 20211110
  Receipt Date: 20211110
  Transmission Date: 20220304
  Serious: No
  Sender: FDA-Public Use
  Company Number: US-KARYOPHARM-2021KPT001275

PATIENT

DRUGS (13)
  1. XPOVIO [Suspect]
     Active Substance: SELINEXOR
     Indication: Plasma cell myeloma
     Dosage: 80 MG, 2X/WEEK
     Route: 048
     Dates: start: 20210930, end: 202110
  2. ACYCLOVIR [Concomitant]
     Active Substance: ACYCLOVIR
  3. APREPITANT [Concomitant]
     Active Substance: APREPITANT
  4. BACLOFEN [Concomitant]
     Active Substance: BACLOFEN
  5. DEXAMETHASONE [Concomitant]
     Active Substance: DEXAMETHASONE
  6. GABAPENTIN [Concomitant]
     Active Substance: GABAPENTIN
  7. ONDANSETRON [Concomitant]
     Active Substance: ONDANSETRON
  8. OXYCODONE [Concomitant]
     Active Substance: OXYCODONE
  9. PANTOPRAZOLE [Concomitant]
     Active Substance: PANTOPRAZOLE
  10. POTASSIUM CHLORIDE [Concomitant]
     Active Substance: POTASSIUM CHLORIDE
  11. TRAMADOL [Concomitant]
     Active Substance: TRAMADOL
  12. ERGOCALCIFEROL [Concomitant]
     Active Substance: ERGOCALCIFEROL
  13. CALCIUM GLUCONATE [Concomitant]
     Active Substance: CALCIUM GLUCONATE

REACTIONS (3)
  - Feeling abnormal [Unknown]
  - Platelet count decreased [Unknown]
  - Hyponatraemia [Unknown]

NARRATIVE: CASE EVENT DATE: 20210101
